FAERS Safety Report 14401460 (Version 3)
Quarter: 2018Q1

REPORT INFORMATION
  Report Type: Spontaneous
  Country: US (occurrence: US)
  Receive Date: 20180117
  Receipt Date: 20180220
  Transmission Date: 20180509
  Serious: No
  Sender: FDA-Public Use
  Company Number: US-PFIZER INC-2018020028

PATIENT
  Age: 8 Decade
  Sex: Female
  Weight: 65.76 kg

DRUGS (1)
  1. LATANOPROST. [Suspect]
     Active Substance: LATANOPROST
     Indication: GLAUCOMA
     Dosage: 2 DROPS, DAILY (ONE DROP IN EACH EYE IN THE EVENING)

REACTIONS (3)
  - Intraocular pressure increased [Recovered/Resolved]
  - Drug ineffective [Not Recovered/Not Resolved]
  - Eye swelling [Unknown]
